FAERS Safety Report 11913555 (Version 1)
Quarter: 2016Q1

REPORT INFORMATION
  Report Type: Spontaneous
  Country: CA (occurrence: CA)
  Receive Date: 20160113
  Receipt Date: 20160113
  Transmission Date: 20160526
  Serious: Yes (Hospitalization)
  Sender: FDA-Public Use
  Company Number: CA-TEVA-624747ACC

PATIENT
  Age: 49 Year
  Sex: Female
  Weight: 58 kg

DRUGS (16)
  1. ASA [Concomitant]
     Active Substance: ASPIRIN
  2. CALCIUM CARBONATE. [Concomitant]
     Active Substance: CALCIUM CARBONATE
  3. SENNOSIDES. [Concomitant]
     Active Substance: SENNOSIDES
  4. ZOPICLONE [Concomitant]
     Active Substance: ZOPICLONE
  5. ATORVASTATIN CALCIUM. [Concomitant]
     Active Substance: ATORVASTATIN CALCIUM
  6. DIAMINE [Concomitant]
  7. AMLODIPINE [Concomitant]
     Active Substance: AMLODIPINE BESYLATE
  8. ARANESP [Concomitant]
     Active Substance: DARBEPOETIN ALFA
     Route: 042
  9. COLACE [Concomitant]
     Active Substance: DOCUSATE SODIUM
  10. DEXILANT [Concomitant]
     Active Substance: DEXLANSOPRAZOLE
  11. PREDNISONE. [Concomitant]
     Active Substance: PREDNISONE
  12. HUMALOG [Concomitant]
     Active Substance: INSULIN LISPRO
  13. LORAZEPAM. [Concomitant]
     Active Substance: LORAZEPAM
  14. AMIODARONE [Suspect]
     Active Substance: AMIODARONE
     Indication: ATRIAL FIBRILLATION
     Dosage: 200 MILLIGRAM DAILY;
     Route: 065
  15. ATOVAQUONE PROGUANIL [Concomitant]
     Active Substance: ATOVAQUONE\PROGUANIL
  16. SYNTHROID [Concomitant]
     Active Substance: LEVOTHYROXINE SODIUM

REACTIONS (5)
  - Jaundice [Unknown]
  - Fatigue [Unknown]
  - Dyspnoea [Unknown]
  - Hepatitis cholestatic [Unknown]
  - Faeces pale [Unknown]
